FAERS Safety Report 7099055-8 (Version None)
Quarter: 2010Q4

REPORT INFORMATION
  Report Type: 
  Country: None (occurrence: None)
  Receive Date: 20101112
  Receipt Date: 20101109
  Transmission Date: 20110411
  Serious: Yes (Hospitalization)
  Sender: FDA-Public Use
  Company Number: FR-BRISTOL-MYERS SQUIBB COMPANY-15376791

PATIENT
  Age: 19 Year
  Sex: Male

DRUGS (15)
  1. AMIKLIN INJ [Suspect]
     Indication: AGRANULOCYTOSIS
     Dates: start: 20100824, end: 20100909
  2. MEROPENEM [Suspect]
     Indication: AGRANULOCYTOSIS
     Route: 042
     Dates: start: 20100824, end: 20100909
  3. TARGOCID [Suspect]
     Indication: AGRANULOCYTOSIS
     Dates: start: 20100824, end: 20100909
  4. GAVISCON [Concomitant]
  5. DIFFU-K [Concomitant]
  6. TAGAMET [Concomitant]
  7. TOCO [Concomitant]
     Dosage: 1 DF=500 UNIT NOS
  8. MULTIVITAMIN [Concomitant]
  9. DELURSAN [Concomitant]
  10. CREON [Concomitant]
  11. SERETIDE [Concomitant]
     Dosage: SERETIDE DISKUS
  12. SPORANOX [Concomitant]
     Dosage: 1 DF=200UNIT NOS
  13. PULMOZYME [Concomitant]
  14. COLIMYCINE [Concomitant]
     Dosage: COLIMYCINE 3 MU
  15. RENUTRYL [Concomitant]

REACTIONS (1)
  - PSEUDOMEMBRANOUS COLITIS [None]
